FAERS Safety Report 8508780-0 (Version None)
Quarter: 2012Q3

REPORT INFORMATION
  Report Type: 
  Country: None (occurrence: None)
  Receive Date: 20120713
  Receipt Date: 20120709
  Transmission Date: 20120928
  Serious: Yes (Hospitalization)
  Sender: FDA-Public Use
  Company Number: DE-JNJFOC-20120412514

PATIENT
  Sex: Male
  Weight: 85 kg

DRUGS (8)
  1. REMICADE [Suspect]
     Indication: COLITIS ULCERATIVE
     Route: 042
     Dates: start: 20100608, end: 20110623
  2. PENTAERITHRITYL TETRANITRATE [Concomitant]
     Indication: CARDIOVASCULAR DISORDER
     Route: 048
  3. MESALAMINE [Concomitant]
     Indication: COLITIS ULCERATIVE
     Dosage: GTRWURNVY REPORTED AS 3 X 2
     Route: 048
  4. RAMIPRIL [Concomitant]
     Indication: HYPERTENSION
     Route: 048
  5. SIMVASTATIN [Concomitant]
     Indication: HYPERCHOLESTEROLAEMIA
     Route: 048
  6. TAMSULOSIN HCL [Concomitant]
     Indication: BENIGN PROSTATIC HYPERPLASIA
     Route: 048
  7. AMARYL [Concomitant]
     Indication: DIABETES MELLITUS
     Route: 048
  8. METOPROLOL TARTRATE [Concomitant]
     Indication: HYPERTENSION
     Dosage: DOSE ERPORTED AS 55/12.5 MG
     Route: 048

REACTIONS (1)
  - BURSITIS [None]
